FAERS Safety Report 15155772 (Version 1)
Quarter: 2018Q3

REPORT INFORMATION
  Report Type: Spontaneous
  Country: IT (occurrence: IT)
  Receive Date: 20180717
  Receipt Date: 20180717
  Transmission Date: 20181010
  Serious: Yes (Hospitalization)
  Sender: FDA-Public Use
  Company Number: IT-US WORLDMEDS, LLC-STA_00018852

PATIENT
  Age: 25 Year
  Sex: Female

DRUGS (1)
  1. APOMORPHINE HYDROCHLORIDE [Suspect]
     Active Substance: APOMORPHINE HYDROCHLORIDE
     Dosage: 370UG
     Route: 030

REACTIONS (16)
  - Vomiting [Unknown]
  - Hyperventilation [Unknown]
  - Intentional product use issue [Unknown]
  - Tonic clonic movements [Unknown]
  - Incorrect route of drug administration [Unknown]
  - Nausea [Unknown]
  - Yawning [Unknown]
  - Cardiac arrest [Unknown]
  - Dyspepsia [Unknown]
  - Headache [Unknown]
  - Hypotension [Unknown]
  - Pallor [Unknown]
  - Urinary incontinence [Unknown]
  - Gaze palsy [Unknown]
  - Hyperhidrosis [Unknown]
  - Asthenia [Unknown]
